FAERS Safety Report 6669550-1 (Version None)
Quarter: 2010Q2

REPORT INFORMATION
  Report Type: 
  Country: None (occurrence: None)
  Receive Date: 20100406
  Receipt Date: 20100331
  Transmission Date: 20101027
  Serious: Yes (Other)
  Sender: FDA-Public Use
  Company Number: US-PFIZER INC-2010042054

PATIENT
  Sex: Female

DRUGS (3)
  1. XALATAN [Suspect]
     Indication: INTRAOCULAR PRESSURE TEST ABNORMAL
     Dosage: UNK
     Dates: start: 20100323, end: 20100326
  2. PROTONIX [Concomitant]
     Indication: URINARY TRACT INFECTION
     Dosage: UNK
  3. CARMELLOSE SODIUM [Concomitant]
     Dosage: UNK

REACTIONS (5)
  - INSOMNIA [None]
  - OCULAR HYPERAEMIA [None]
  - PRURITUS [None]
  - VISION BLURRED [None]
  - VISUAL IMPAIRMENT [None]
